FAERS Safety Report 12784468 (Version 2)
Quarter: 2016Q4

REPORT INFORMATION
  Report Type: Spontaneous
  Country: US (occurrence: US)
  Receive Date: 20160927
  Receipt Date: 20161011
  Transmission Date: 20170207
  Serious: Yes (Other)
  Sender: FDA-Public Use
  Company Number: US-SAOL THERAPEUTICS-2016SAO00697

PATIENT
  Age: 18 Year
  Sex: Female

DRUGS (1)
  1. BACLOFEN. [Suspect]
     Active Substance: BACLOFEN
     Dosage: UNKNOWN
     Route: 037

REACTIONS (1)
  - Implant site infection [Unknown]

NARRATIVE: CASE EVENT DATE: 20160912
